FAERS Safety Report 9168015 (Version 3)
Quarter: 2013Q2

REPORT INFORMATION
  Report Type: Report from Study
  Country: US (occurrence: US)
  Receive Date: 20130318
  Receipt Date: 20130401
  Transmission Date: 20140414
  Serious: No
  Sender: FDA-Public Use
  Company Number: US-VERTEX PHARMACEUTICALS INC.-2013-003659

PATIENT
  Age: 59 Year
  Sex: Male
  Weight: 95 kg

DRUGS (5)
  1. VX-950 (TELAPREVIR) [Suspect]
     Indication: HEPATITIS C
     Dosage: 750 MG, TID
     Route: 048
  2. RIBAPAK [Suspect]
     Indication: HEPATITIS C
     Dosage: 1000 UNK, QD
  3. PEGASYS PROCLICK [Suspect]
     Indication: HEPATITIS C
     Dosage: UNK
  4. LOSARTAN POTASSIUM [Concomitant]
     Dosage: 50 MG, UNK
  5. MULTIVITAMINS PLUS IRON [Concomitant]

REACTIONS (3)
  - Blood iron decreased [Unknown]
  - Dry mouth [Unknown]
  - Fatigue [Unknown]
